FAERS Safety Report 16707512 (Version 5)
Quarter: 2020Q2

REPORT INFORMATION
  Report Type: Spontaneous
  Country: US (occurrence: US)
  Receive Date: 20190815
  Receipt Date: 20200430
  Transmission Date: 20200713
  Serious: Yes (Death, Hospitalization)
  Sender: FDA-Public Use
  Company Number: US-ACTELION-A-NJ2019-192631

PATIENT
  Age: 76 Year
  Sex: Female
  Weight: 64.4 kg

DRUGS (5)
  1. OPSUMIT [Suspect]
     Active Substance: MACITENTAN
     Indication: PULMONARY HYPERTENSION
     Dosage: 10 MG, QD
     Route: 048
     Dates: start: 201906
  2. DILTIAZEM. [Concomitant]
     Active Substance: DILTIAZEM
  3. ESBRIET [Concomitant]
     Active Substance: PIRFENIDONE
  4. TYVASO [Concomitant]
     Active Substance: TREPROSTINIL
  5. AMLODIPINE [Concomitant]
     Active Substance: AMLODIPINE BESYLATE

REACTIONS (11)
  - Autoimmune disorder [Unknown]
  - Chills [Unknown]
  - Dyspnoea [Unknown]
  - Oxygen saturation decreased [Unknown]
  - Dyspnoea at rest [Unknown]
  - Death [Fatal]
  - Concomitant disease progression [Unknown]
  - Raynaud^s phenomenon [Unknown]
  - Pulmonary function test abnormal [Unknown]
  - Poor peripheral circulation [Unknown]
  - Ear infection [Unknown]

NARRATIVE: CASE EVENT DATE: 20200409
